APPROVED DRUG PRODUCT: OVRAL-28
Active Ingredient: ETHINYL ESTRADIOL; NORGESTREL
Strength: 0.05MG;0.5MG
Dosage Form/Route: TABLET;ORAL-28
Application: N016806 | Product #001
Applicant: WYETH PHARMACEUTICALS INC SUB PFIZER INC
Approved: Approved Prior to Jan 1, 1982 | RLD: No | RS: No | Type: DISCN